FAERS Safety Report 8252118-3 (Version None)
Quarter: 2012Q2

REPORT INFORMATION
  Report Type: 
  Country: None (occurrence: None)
  Receive Date: 20120402
  Receipt Date: 20120213
  Transmission Date: 20120825
  Serious: No
  Sender: FDA-Public Use
  Company Number: US-ABBOTT-10P-163-0801647-00

PATIENT
  Sex: Male
  Weight: 98.518 kg

DRUGS (10)
  1. BENAZEPRIL HYDROCHLORIDE [Concomitant]
     Indication: BLOOD PRESSURE
  2. LEVOTHYROXINE SODIUM [Concomitant]
     Indication: THYROID DISORDER
  3. ANDROGEL [Suspect]
     Indication: PRODUCT USED FOR UNKNOWN INDICATION
     Dosage: DAILY DOSE:  UNKNOWN
     Route: 065
     Dates: start: 20080701, end: 20090701
  4. KEPPRA [Concomitant]
     Indication: CONVULSION
  5. ASPIRIN [Concomitant]
     Indication: ANTICOAGULANT THERAPY
  6. ANDROGEL [Suspect]
     Dosage: 7.5 GM DAILY
     Dates: end: 20101201
  7. ANDROGEL [Suspect]
     Dosage: 2.5 GM DAILY
     Dates: start: 20101201
  8. ANDRODERM [Suspect]
     Indication: PRODUCT USED FOR UNKNOWN INDICATION
     Dosage: DAILY DOSE:  UNKNOWN
     Route: 065
     Dates: start: 20080101, end: 20080701
  9. ANDROGEL [Suspect]
     Indication: BLOOD TESTOSTERONE DECREASED
     Dosage: 5 GM DAILY, ONCE EVERY TWO DAYS
     Dates: start: 20010101
  10. TOPROL-XL [Concomitant]
     Indication: HEART RATE

REACTIONS (2)
  - GYNAECOMASTIA [None]
  - HAEMATOCRIT INCREASED [None]
